FAERS Safety Report 8621186-9 (Version None)
Quarter: 2012Q3

REPORT INFORMATION
  Report Type: 
  Country: None (occurrence: None)
  Receive Date: 20120824
  Receipt Date: 20120810
  Transmission Date: 20120928
  Serious: Yes (Other)
  Sender: FDA-Public Use
  Company Number: JP-ROCHE-1101329

PATIENT
  Age: 1 Year

DRUGS (1)
  1. ROCEPHIN [Suspect]
     Indication: SEPSIS
     Dosage: DOSAGE IS UNCERTAIN.
     Route: 042

REACTIONS (1)
  - ILEUS [None]
